FAERS Safety Report 9301341 (Version 2)
Quarter: 2013Q3

REPORT INFORMATION
  Report Type: Spontaneous
  Country: IT (occurrence: IT)
  Receive Date: 20130521
  Receipt Date: 20130703
  Transmission Date: 20140515
  Serious: Yes (Hospitalization)
  Sender: FDA-Public Use
  Company Number: IT-PFIZER INC-2013155029

PATIENT
  Age: 78 Year
  Sex: Male

DRUGS (4)
  1. LYRICA [Suspect]
     Indication: NEUROPATHY PERIPHERAL
     Dosage: 1 DF, 1X/DAY
     Route: 048
     Dates: start: 20130514, end: 20130514
  2. XATRAL [Concomitant]
     Route: 048
  3. NORVASC [Concomitant]
     Route: 048
  4. KARVEZIDE [Concomitant]

REACTIONS (4)
  - Syncope [Recovered/Resolved]
  - Vision blurred [Recovered/Resolved]
  - Fall [Recovered/Resolved]
  - Head injury [Recovered/Resolved]
